FAERS Safety Report 10074468 (Version 1)
Quarter: 2014Q2

REPORT INFORMATION
  Report Type: Spontaneous
  Country: US (occurrence: US)
  Receive Date: 20140411
  Receipt Date: 20140411
  Transmission Date: 20141212
  Serious: No
  Sender: FDA-Public Use
  Company Number: US-SA-2013SA096240

PATIENT
  Age: 71 Year
  Sex: Male

DRUGS (1)
  1. ALLEGRA D [Suspect]
     Indication: HYPERSENSITIVITY
     Dosage: START - 3 YEARS ?DOSE -- 60 MG / 120 MG
     Route: 048

REACTIONS (1)
  - Medication residue present [Unknown]
